FAERS Safety Report 8251844-X (Version None)
Quarter: 2012Q2

REPORT INFORMATION
  Report Type: 
  Country: None (occurrence: None)
  Receive Date: 20120402
  Receipt Date: 20120329
  Transmission Date: 20120825
  Serious: Yes (Death)
  Sender: FDA-Public Use
  Company Number: GB-ABBOTT-11P-167-0882841-00

PATIENT
  Sex: Male

DRUGS (1)
  1. HUMIRA [Suspect]
     Indication: RHEUMATOID ARTHRITIS
     Dosage: 40 MG/0.8 ML
     Route: 058
     Dates: start: 20071031, end: 20090101

REACTIONS (4)
  - PNEUMONIA [None]
  - EPILEPSY [None]
  - HYPERTENSION [None]
  - DIABETES MELLITUS [None]
